FAERS Safety Report 5014633-5 (Version None)
Quarter: 2006Q2

REPORT INFORMATION
  Report Type: 
  Country: None (occurrence: None)
  Receive Date: 20060412
  Receipt Date: 20050616
  Transmission Date: 20061013
  Serious: Yes (Life-Threatening)
  Sender: FDA-Public Use
  Company Number: 2005-BP-18726AI

PATIENT
  Age: 83 Year
  Sex: Male

DRUGS (2)
  1. MOBIC [Suspect]
     Dosage: 15 MG (15 MG, 1 IN 1 D), PO
     Route: 048
  2. ACETYLSALICYLIC ACID SRT [Concomitant]

REACTIONS (1)
  - GASTROINTESTINAL HAEMORRHAGE [None]
